FAERS Safety Report 6535284-7 (Version None)
Quarter: 2010Q1

REPORT INFORMATION
  Report Type: 
  Country: None (occurrence: None)
  Receive Date: 20100113
  Receipt Date: 20100110
  Transmission Date: 20100710
  Serious: Yes (Hospitalization)
  Sender: FDA-Public Use
  Company Number: BR-ROCHE-674111

PATIENT
  Sex: Male
  Weight: 55 kg

DRUGS (2)
  1. ROACUTAN [Suspect]
     Indication: ACNE
     Route: 065
     Dates: start: 20060801, end: 20061201
  2. VITAMIN E [Concomitant]

REACTIONS (4)
  - ACNE [None]
  - COLITIS ULCERATIVE [None]
  - FOOD POISONING [None]
  - VIRAL INFECTION [None]
